FAERS Safety Report 24662005 (Version 1)
Quarter: 2024Q4

REPORT INFORMATION
  Report Type: Spontaneous
  Country: US (occurrence: US)
  Receive Date: 20241125
  Receipt Date: 20241125
  Transmission Date: 20250115
  Serious: Yes (Other)
  Sender: PRINSTON PHARMACEUTICAL
  Company Number: US-PRINSTON PHARMACEUTICAL INC.-2024PRN00234

PATIENT
  Sex: Male

DRUGS (3)
  1. METHOCARBAMOL [Suspect]
     Active Substance: METHOCARBAMOL
     Dosage: UNK
  2. REMICADE [Suspect]
     Active Substance: INFLIXIMAB
  3. UNSPECIFIED INGREDIENT [Suspect]
     Active Substance: UNSPECIFIED INGREDIENT

REACTIONS (4)
  - Anaphylactic reaction [Unknown]
  - Food allergy [Unknown]
  - Arthropod bite [Unknown]
  - Gastrointestinal disorder [Unknown]
